FAERS Safety Report 5410782-8 (Version None)
Quarter: 2007Q3

REPORT INFORMATION
  Report Type: 
  Country: None (occurrence: None)
  Receive Date: 20070810
  Receipt Date: 20070430
  Transmission Date: 20080115
  Serious: No
  Sender: FDA-Public Use
  Company Number: A0649247A

PATIENT
  Age: 76 Year
  Sex: Female

DRUGS (6)
  1. PAXIL CR [Suspect]
     Indication: ANXIETY DISORDER
     Dosage: 12.5MG ALTERNATE DAYS
     Route: 048
  2. CARDIAZEM [Concomitant]
  3. LIPITOR [Concomitant]
  4. TENORMIN [Concomitant]
  5. ECOTRIN [Concomitant]
  6. ALDACTAZIDE [Concomitant]

REACTIONS (2)
  - HEADACHE [None]
  - HEART RATE IRREGULAR [None]
